FAERS Safety Report 10706538 (Version 1)
Quarter: 2015Q1

REPORT INFORMATION
  Report Type: Spontaneous
  Country: US (occurrence: None)
  Receive Date: 20150109
  Receipt Date: 20150109
  Transmission Date: 20150721
  Serious: Yes (Disabling)
  Sender: FDA-Public Use
  Company Number: None

PATIENT

DRUGS (1)
  1. CHAPSTICK CLASSIC ORIGINAL [Suspect]
     Active Substance: PETROLATUM
     Dosage: STRENGTH: EOS

REACTIONS (4)
  - Pruritus [None]
  - Oral discomfort [None]
  - Lip dry [None]
  - Cheilitis [None]
